FAERS Safety Report 23308695 (Version 1)
Quarter: 2023Q4

REPORT INFORMATION
  Report Type: Spontaneous
  Country: US (occurrence: None)
  Receive Date: 20231217
  Receipt Date: 20231217
  Transmission Date: 20240109
  Serious: Yes (Life-Threatening, Hospitalization, Other)
  Sender: FDA-Public Use
  Company Number: None

PATIENT
  Sex: Female

DRUGS (1)
  1. PRECEDEX [Suspect]
     Active Substance: DEXMEDETOMIDINE HYDROCHLORIDE

REACTIONS (8)
  - Lactic acidosis [None]
  - Brain natriuretic peptide abnormal [None]
  - Low cardiac output syndrome [None]
  - Body temperature decreased [None]
  - Drug monitoring procedure not performed [None]
  - Heart transplant [None]
  - Vocal cord paralysis [None]
  - Incorrect product administration duration [None]

NARRATIVE: CASE EVENT DATE: 20220130
